FAERS Safety Report 9703052 (Version 1)
Quarter: 2013Q4

REPORT INFORMATION
  Report Type: Spontaneous
  Country: IT (occurrence: IT)
  Receive Date: 20131122
  Receipt Date: 20131122
  Transmission Date: 20140711
  Serious: No
  Sender: FDA-Public Use
  Company Number: IT-JNJFOC-20131107435

PATIENT
  Age: 74 Year
  Sex: Male

DRUGS (1)
  1. DUROGESIC [Suspect]
     Indication: PRODUCT USED FOR UNKNOWN INDICATION
     Route: 062
     Dates: start: 20131110, end: 20131110

REACTIONS (3)
  - Vomiting [Unknown]
  - Sluggishness [Unknown]
  - Drug administration error [Unknown]
